FAERS Safety Report 20628124 (Version 1)
Quarter: 2022Q1

REPORT INFORMATION
  Report Type: Spontaneous
  Country: FR (occurrence: FR)
  Receive Date: 20220323
  Receipt Date: 20220323
  Transmission Date: 20220423
  Serious: Yes (Other)
  Sender: FDA-Public Use
  Company Number: FR-ELI_LILLY_AND_COMPANY-FR202109008936

PATIENT
  Age: 78 Year
  Sex: Female

DRUGS (1)
  1. OLUMIANT [Suspect]
     Active Substance: BARICITINIB
     Indication: Product used for unknown indication
     Dosage: UNK, UNKNOWN
     Route: 048
     Dates: start: 2019

REACTIONS (4)
  - Carcinoid tumour pulmonary [Unknown]
  - Pulmonary mass [Unknown]
  - Dyspnoea [Unknown]
  - Pleural thickening [Unknown]

NARRATIVE: CASE EVENT DATE: 20210901
